FAERS Safety Report 24855526 (Version 2)
Quarter: 2025Q1

REPORT INFORMATION
  Report Type: Spontaneous
  Country: US (occurrence: US)
  Receive Date: 20250117
  Receipt Date: 20250123
  Transmission Date: 20250409
  Serious: No
  Sender: Kenvue
  Company Number: US-KENVUE-20241207083

PATIENT
  Age: 50 Year
  Sex: Female

DRUGS (1)
  1. WOMENS ROGAINE UNSCENTED [Suspect]
     Active Substance: MINOXIDIL
     Indication: Alopecia
     Route: 061
     Dates: start: 20241205, end: 20241212

REACTIONS (2)
  - Headache [Recovering/Resolving]
  - Skin mass [Recovering/Resolving]

NARRATIVE: CASE EVENT DATE: 20241209
